FAERS Safety Report 15887092 (Version 1)
Quarter: 2019Q1

REPORT INFORMATION
  Report Type: Spontaneous
  Country: DE (occurrence: DE)
  Receive Date: 20190130
  Receipt Date: 20190130
  Transmission Date: 20190417
  Serious: Yes (Other)
  Sender: FDA-Public Use
  Company Number: DE-JNJFOC-20190126759

PATIENT
  Sex: Female

DRUGS (3)
  1. REGAINE FRAUEN 2% [Suspect]
     Active Substance: MINOXIDIL
     Route: 061
  2. REGAINE FRAUEN 2% [Suspect]
     Active Substance: MINOXIDIL
     Indication: ALOPECIA
     Dosage: 6 SPRY-HUBS EACH TIME TWO TIMES A DAY
     Route: 061
     Dates: start: 20180901
  3. RAMILICH [Concomitant]
     Active Substance: RAMIPRIL
     Indication: HYPERTENSION
     Route: 065

REACTIONS (2)
  - Contraindicated product administered [Unknown]
  - Hypertension [Not Recovered/Not Resolved]

NARRATIVE: CASE EVENT DATE: 20181201
